FAERS Safety Report 11278624 (Version 1)
Quarter: 2015Q3

REPORT INFORMATION
  Report Type: Report from Study
  Country: US (occurrence: US)
  Receive Date: 20150717
  Receipt Date: 20150717
  Transmission Date: 20151125
  Serious: Yes (Disabling, Other)
  Sender: FDA-Public Use
  Company Number: US-ROCHE-1389556

PATIENT
  Sex: Male
  Weight: 88.18 kg

DRUGS (2)
  1. XOLAIR [Suspect]
     Active Substance: OMALIZUMAB
     Indication: ASTHMA
     Route: 058
  2. XOLAIR [Suspect]
     Active Substance: OMALIZUMAB
     Indication: IDIOPATHIC URTICARIA
     Route: 058

REACTIONS (8)
  - Chest pain [Unknown]
  - Nervousness [Unknown]
  - Dysphonia [Unknown]
  - Memory impairment [Unknown]
  - Malaise [Unknown]
  - Ill-defined disorder [Unknown]
  - Disability [Unknown]
  - Cyst [Unknown]
